FAERS Safety Report 25112280 (Version 4)
Quarter: 2025Q2

REPORT INFORMATION
  Report Type: Spontaneous
  Country: US (occurrence: US)
  Receive Date: 20250324
  Receipt Date: 20250424
  Transmission Date: 20250716
  Serious: No
  Sender: PFIZER
  Company Number: US-PFIZER INC-202500060592

PATIENT
  Age: 12 Year
  Sex: Female
  Weight: 37.87 kg

DRUGS (1)
  1. NGENLA [Suspect]
     Active Substance: SOMATROGON-GHLA
     Indication: Growth hormone deficiency
     Dosage: 25 MG, WEEKLY
     Route: 058
     Dates: start: 20250208, end: 20250301

REACTIONS (1)
  - Injection site pain [Recovered/Resolved]

NARRATIVE: CASE EVENT DATE: 20250208
